FAERS Safety Report 19515540 (Version 3)
Quarter: 2021Q3

REPORT INFORMATION
  Report Type: Report from Study
  Country: US (occurrence: US)
  Receive Date: 20210710
  Receipt Date: 20210930
  Transmission Date: 20211014
  Serious: Yes (Hospitalization)
  Sender: FDA-Public Use
  Company Number: NVSC2021US143692

PATIENT
  Age: 58 Year
  Sex: Male

DRUGS (1)
  1. ENTRESTO [Suspect]
     Active Substance: SACUBITRIL\VALSARTAN
     Indication: PRODUCT USED FOR UNKNOWN INDICATION
     Dosage: UNK, BID
     Route: 048
     Dates: start: 202102

REACTIONS (6)
  - Pneumonia [Recovered/Resolved]
  - Brain natriuretic peptide increased [Recovered/Resolved]
  - Blood pressure increased [Recovered/Resolved]
  - Memory impairment [Unknown]
  - Product dose omission issue [Unknown]
  - Oxygen saturation decreased [Recovered/Resolved]
